FAERS Safety Report 7201844-3 (Version None)
Quarter: 2010Q4

REPORT INFORMATION
  Report Type: 
  Country: None (occurrence: None)
  Receive Date: 20101229
  Receipt Date: 20101220
  Transmission Date: 20110411
  Serious: Yes (Other)
  Sender: FDA-Public Use
  Company Number: US-JNJFOC-20101207264

PATIENT
  Sex: Female
  Weight: 81.19 kg

DRUGS (18)
  1. REMICADE [Suspect]
     Indication: RHEUMATOID ARTHRITIS
     Route: 042
  2. REMICADE [Suspect]
     Route: 042
  3. PROZAC [Concomitant]
     Indication: PAIN
     Route: 048
  4. TRAZODONE [Concomitant]
     Indication: SLEEP DISORDER THERAPY
     Route: 048
  5. PLAQUENIL [Concomitant]
     Indication: RHEUMATOID ARTHRITIS
     Route: 048
  6. CARDURA [Concomitant]
     Indication: HYPERTENSION
     Route: 048
  7. LEVOTHYROXINE [Concomitant]
     Indication: HYPOTHYROIDISM
     Route: 048
  8. CENESTIN [Concomitant]
     Indication: HORMONE REPLACEMENT THERAPY
     Route: 048
  9. NORETHINDRONE [Concomitant]
     Indication: HORMONE REPLACEMENT THERAPY
     Route: 048
  10. LABETALOL [Concomitant]
     Indication: HYPERTENSION
     Route: 048
  11. DURAGESIC-50 [Concomitant]
     Indication: PAIN
     Route: 062
  12. COZAAR [Concomitant]
     Indication: HYPERTENSION
     Route: 048
  13. VITAMIN D [Concomitant]
     Indication: NUTRITIONAL SUPPORT
     Route: 048
  14. RESTASIS [Concomitant]
     Indication: DRY EYE
     Route: 047
  15. MOBIC [Concomitant]
     Indication: PAIN
     Route: 048
  16. OXYCODONE [Concomitant]
     Indication: PAIN
     Route: 048
  17. SOMA [Concomitant]
     Route: 048
  18. NORVASC [Concomitant]
     Indication: HYPERTENSION
     Route: 048

REACTIONS (9)
  - CHEILITIS [None]
  - DYSGEUSIA [None]
  - FLUID RETENTION [None]
  - FOOD CRAVING [None]
  - INFLAMMATION [None]
  - LIMB OPERATION [None]
  - MOLLUSCUM CONTAGIOSUM [None]
  - STOMATITIS [None]
  - WEIGHT INCREASED [None]
